FAERS Safety Report 12238233 (Version 1)
Quarter: 2016Q2

REPORT INFORMATION
  Report Type: Spontaneous
  Country: US (occurrence: US)
  Receive Date: 20160405
  Receipt Date: 20160405
  Transmission Date: 20160815
  Serious: No
  Sender: FDA-Public Use
  Company Number: US-WATSON-2016-06245

PATIENT
  Sex: Female

DRUGS (2)
  1. LIDOCAINE HYDROCHLORIDE (WATSON LABORATORIES) [Suspect]
     Active Substance: LIDOCAINE HYDROCHLORIDE
     Indication: NERVE INJURY
     Dosage: 1 DF, 12 HOURS ON/12 HOURS OFF
     Route: 062
  2. LIDOCAINE (WATSON LABORATORIES) [Suspect]
     Active Substance: LIDOCAINE
     Indication: NERVE INJURY
     Dosage: 1 DF, 3X/DAY
     Route: 061

REACTIONS (1)
  - Drug ineffective [Unknown]
